FAERS Safety Report 4434508-X (Version None)
Quarter: 2004Q3

REPORT INFORMATION
  Report Type: 
  Country: None (occurrence: None)
  Receive Date: 20040726
  Receipt Date: 20040414
  Transmission Date: 20050211
  Serious: No
  Sender: FDA-Public Use
  Company Number: USA040464888

PATIENT
  Age: 68 Year
  Sex: Female
  Weight: 43 kg

DRUGS (4)
  1. FORTEO [Suspect]
     Indication: OSTEOPOROSIS
     Dosage: 20 UG/1 DAY
     Dates: start: 20040413
  2. LORAZEPAM [Concomitant]
  3. VITAMIN D [Concomitant]
  4. PENTA-TRIAMTERENE HCTZ [Concomitant]

REACTIONS (2)
  - FEELING COLD [None]
  - HEADACHE [None]
